FAERS Safety Report 7973554-6 (Version None)
Quarter: 2011Q4

REPORT INFORMATION
  Report Type: 
  Country: None (occurrence: None)
  Receive Date: 20111213
  Receipt Date: 20111102
  Transmission Date: 20120403
  Serious: Yes (Other)
  Sender: FDA-Public Use
  Company Number: US-SHIRE-ALL1-2011-04740

PATIENT
  Sex: Female

DRUGS (4)
  1. XYREM [Suspect]
     Indication: NARCOLEPSY
     Dosage: 2.25 MG, ONE DOSE
     Route: 048
     Dates: start: 20111102, end: 20111102
  2. METADATE CD [Suspect]
     Indication: NARCOLEPSY
     Dosage: 30 MG, 1X/DAY:QD
     Route: 065
  3. XYREM [Suspect]
     Dosage: 2.25 G, 2X/DAY:BID(TWICE NIGHTLY)
     Route: 048
     Dates: start: 20111102
  4. PROPRANOLOL [Suspect]
     Indication: HYPERTENSION
     Dosage: 240 MG, 1X/DAY:QD
     Route: 048
     Dates: start: 20110501

REACTIONS (7)
  - SOMNOLENCE [None]
  - MUSCLE TWITCHING [None]
  - VOMITING [None]
  - DYSPNOEA [None]
  - ALTERED STATE OF CONSCIOUSNESS [None]
  - MUSCLE SPASTICITY [None]
  - FEELING ABNORMAL [None]
